FAERS Safety Report 6293699-9 (Version None)
Quarter: 2009Q3

REPORT INFORMATION
  Report Type: 
  Country: None (occurrence: None)
  Receive Date: 20090803
  Receipt Date: 20090726
  Transmission Date: 20100115
  Serious: Yes (Hospitalization)
  Sender: FDA-Public Use
  Company Number: PT-JNJFOC-20090703998

PATIENT
  Sex: Female
  Weight: 58 kg

DRUGS (1)
  1. ORTHO EVRA [Suspect]
     Indication: CONTRACEPTION
     Route: 062

REACTIONS (5)
  - DIZZINESS [None]
  - HOSPITALISATION [None]
  - NAUSEA [None]
  - PYREXIA [None]
  - VOMITING [None]
